FAERS Safety Report 4517820-5 (Version None)
Quarter: 2004Q4

REPORT INFORMATION
  Report Type: 
  Country: None (occurrence: None)
  Receive Date: 20041203
  Receipt Date: 20030407
  Transmission Date: 20050328
  Serious: Yes (Hospitalization, Other)
  Sender: FDA-Public Use
  Company Number: US-MERCK-0304USA00760

PATIENT
  Age: 58 Year
  Sex: Female
  Weight: 77 kg

DRUGS (5)
  1. VIOXX [Suspect]
     Indication: BACK PAIN
     Route: 048
     Dates: start: 20010716
  2. VIOXX [Suspect]
     Route: 048
     Dates: start: 20010701, end: 20020801
  3. VIOXX [Suspect]
     Indication: OSTEOARTHRITIS
     Route: 048
     Dates: start: 20010716
  4. VIOXX [Suspect]
     Route: 048
     Dates: start: 20010701, end: 20020801
  5. TYLENOL W/ CODEINE [Concomitant]
     Route: 065

REACTIONS (24)
  - ABDOMINAL PAIN LOWER [None]
  - ANKLE FRACTURE [None]
  - CELLULITIS [None]
  - CEREBROVASCULAR ACCIDENT [None]
  - CHEST PAIN [None]
  - DIZZINESS [None]
  - EMPTY SELLA SYNDROME [None]
  - FIBROMYALGIA [None]
  - GAIT DISTURBANCE [None]
  - HEPATIC CYST [None]
  - HEPATIC LESION [None]
  - HYPERTENSION [None]
  - INCISION SITE COMPLICATION [None]
  - INJURY [None]
  - INTERVERTEBRAL DISC PROTRUSION [None]
  - LABYRINTHITIS [None]
  - LIVER DISORDER [None]
  - LUMBAR SPINAL STENOSIS [None]
  - LUNG CYST BENIGN [None]
  - LUNG NEOPLASM [None]
  - PNEUMONIA [None]
  - SYNCOPE [None]
  - URINARY RETENTION [None]
  - WOUND INFECTION [None]
